FAERS Safety Report 4898719-1 (Version None)
Quarter: 2006Q1

REPORT INFORMATION
  Report Type: 
  Country: None (occurrence: None)
  Receive Date: 20060131
  Receipt Date: 20060117
  Transmission Date: 20060701
  Serious: Yes (Other)
  Sender: FDA-Public Use
  Company Number: 2006010053

PATIENT
  Sex: Female

DRUGS (2)
  1. DETROL [Suspect]
     Indication: ILL-DEFINED DISORDER
  2. DETROL LA [Suspect]
     Indication: ILL-DEFINED DISORDER

REACTIONS (3)
  - CORNEAL INFECTION [None]
  - LACRIMATION DECREASED [None]
  - ULCERATIVE KERATITIS [None]
